FAERS Safety Report 7298026-6 (Version None)
Quarter: 2011Q1

REPORT INFORMATION
  Report Type: 
  Country: None (occurrence: None)
  Receive Date: 20110217
  Receipt Date: 20110215
  Transmission Date: 20110831
  Serious: Yes (Other)
  Sender: FDA-Public Use
  Company Number: US-PFIZER INC-2011034231

PATIENT
  Sex: Female
  Weight: 54.9 kg

DRUGS (2)
  1. EFFEXOR [Suspect]
     Indication: DEPRESSION
     Dosage: 112.5 MG, 1X/DAY
     Route: 048
     Dates: start: 20090501
  2. AMBIEN [Concomitant]
     Dosage: UNK, AS NEEDED

REACTIONS (1)
  - RASH GENERALISED [None]
